FAERS Safety Report 11303201 (Version 2)
Quarter: 2016Q2

REPORT INFORMATION
  Report Type: Report from Study
  Country: BR (occurrence: BR)
  Receive Date: 20150723
  Receipt Date: 20160630
  Transmission Date: 20160815
  Serious: Yes (Hospitalization, Other)
  Sender: FDA-Public Use
  Company Number: PHHY2013BR079556

PATIENT
  Sex: Female
  Weight: 63 kg

DRUGS (5)
  1. XOLAIR [Suspect]
     Active Substance: OMALIZUMAB
     Indication: ASTHMA
     Dosage: 375 MG, BIW
     Route: 058
     Dates: start: 20081007
  2. FORASEQ [Suspect]
     Active Substance: BUDESONIDE\FORMOTEROL FUMARATE
     Indication: ASTHMA
     Dosage: 1 DF, BID 400/12 MG (TWICE A DAY WITH 1 CAPSULE OF EACH TREATMENT)
     Route: 055
     Dates: start: 2006
  3. LEVOTHYROXINE. [Concomitant]
     Active Substance: LEVOTHYROXINE
     Indication: HYPERTENSION
     Dosage: 1 DF, QD
     Route: 048
  4. ENALAPRIL [Concomitant]
     Active Substance: ENALAPRIL
     Indication: BLOOD PRESSURE ABNORMAL
     Dosage: 1 DF, QD
     Route: 048
  5. XOLAIR [Suspect]
     Active Substance: OMALIZUMAB
     Dosage: UNK
     Route: 058
     Dates: start: 20130715

REACTIONS (18)
  - Dyspnoea [Recovering/Resolving]
  - Syncope [Unknown]
  - Fatigue [Unknown]
  - Nasal inflammation [Unknown]
  - Nasal dryness [Unknown]
  - Asthma [Recovered/Resolved]
  - Chronic sinusitis [Recovered/Resolved]
  - Condition aggravated [Recovered/Resolved]
  - Hypothyroidism [Not Recovered/Not Resolved]
  - Asthma [Recovering/Resolving]
  - Hypertension [Recovered/Resolved]
  - Nasal obstruction [Unknown]
  - Visual acuity reduced [Recovered/Resolved]
  - Back pain [Recovering/Resolving]
  - Asthma [Recovered/Resolved]
  - Malaise [Recovered/Resolved]
  - Pneumonitis [Recovering/Resolving]
  - Erythema [Unknown]

NARRATIVE: CASE EVENT DATE: 2008
